FAERS Safety Report 19993533 (Version 2)
Quarter: 2021Q4

REPORT INFORMATION
  Report Type: Spontaneous
  Country: IL (occurrence: IL)
  Receive Date: 20211026
  Receipt Date: 20211108
  Transmission Date: 20220303
  Serious: Yes (Hospitalization, Other)
  Sender: FDA-Public Use
  Company Number: IL-LUPIN PHARMACEUTICALS INC.-2021-20419

PATIENT
  Age: 59 Year
  Sex: Female

DRUGS (20)
  1. CEFTRIAXONE [Suspect]
     Active Substance: CEFTRIAXONE
     Indication: Antibiotic therapy
     Dosage: UNK
     Route: 065
  2. HYDROCORTISONE [Suspect]
     Active Substance: HYDROCORTISONE
     Indication: Cardiac failure
     Dosage: UNK
     Route: 065
  3. HYDROCORTISONE [Suspect]
     Active Substance: HYDROCORTISONE
     Indication: Shock
  4. HYDROCORTISONE [Suspect]
     Active Substance: HYDROCORTISONE
     Indication: Respiratory failure
  5. AMPICILLIN [Suspect]
     Active Substance: AMPICILLIN
     Indication: Antibiotic therapy
     Dosage: UNK
     Route: 065
  6. CLINDAMYCIN [Suspect]
     Active Substance: CLINDAMYCIN
     Indication: Antibiotic therapy
     Dosage: UNK
     Route: 065
  7. MUCOMYST [Suspect]
     Active Substance: ACETYLCYSTEINE
     Indication: Cardiac failure
     Dosage: UNK
     Route: 065
  8. MUCOMYST [Suspect]
     Active Substance: ACETYLCYSTEINE
     Indication: Shock
  9. MUCOMYST [Suspect]
     Active Substance: ACETYLCYSTEINE
     Indication: Respiratory failure
  10. NOREPINEPHRINE [Suspect]
     Active Substance: NOREPINEPHRINE
     Indication: Cardiac failure
     Dosage: UNK
     Route: 065
  11. NOREPINEPHRINE [Suspect]
     Active Substance: NOREPINEPHRINE
     Indication: Shock
  12. NOREPINEPHRINE [Suspect]
     Active Substance: NOREPINEPHRINE
     Indication: Respiratory failure
  13. TERLIPRESSIN [Suspect]
     Active Substance: TERLIPRESSIN
     Indication: Cardiac failure
     Dosage: UNK
     Route: 065
  14. TERLIPRESSIN [Suspect]
     Active Substance: TERLIPRESSIN
     Indication: Shock
  15. TERLIPRESSIN [Suspect]
     Active Substance: TERLIPRESSIN
     Indication: Respiratory failure
  16. EPINEPHRINE [Suspect]
     Active Substance: EPINEPHRINE
     Indication: Cardiac failure
     Dosage: UNK
     Route: 065
  17. EPINEPHRINE [Suspect]
     Active Substance: EPINEPHRINE
     Indication: Shock
  18. EPINEPHRINE [Suspect]
     Active Substance: EPINEPHRINE
     Indication: Respiratory failure
  19. MEROPENEM [Concomitant]
     Active Substance: MEROPENEM
     Indication: Antibiotic therapy
     Dosage: UNK
     Route: 065
  20. FLUCONAZOLE [Concomitant]
     Active Substance: FLUCONAZOLE
     Indication: Antibiotic therapy
     Dosage: UNK
     Route: 065

REACTIONS (3)
  - Drug ineffective [Unknown]
  - Diarrhoea [Unknown]
  - Oedema peripheral [Unknown]

NARRATIVE: CASE EVENT DATE: 20200101
